FAERS Safety Report 8017553-7 (Version None)
Quarter: 2011Q4

REPORT INFORMATION
  Report Type: 
  Country: None (occurrence: None)
  Receive Date: 20111228
  Receipt Date: 20111219
  Transmission Date: 20120403
  Serious: Yes (Hospitalization)
  Sender: FDA-Public Use
  Company Number: AUR-APL-2011-06229

PATIENT
  Age: 69 Year

DRUGS (2)
  1. CARVEDILOL [Suspect]
     Indication: PRODUCT USED FOR UNKNOWN INDICATION
     Dosage: (75 MG, 1 D)
  2. BISOPROLOL FUMARATE [Concomitant]

REACTIONS (5)
  - BENIGN PROSTATIC HYPERPLASIA [None]
  - RESPIRATORY DISTRESS [None]
  - CHRONIC OBSTRUCTIVE PULMONARY DISEASE [None]
  - CARDIAC FAILURE [None]
  - RESPIRATORY TRACT INFECTION [None]
